FAERS Safety Report 6272301-6 (Version None)
Quarter: 2009Q3

REPORT INFORMATION
  Report Type: 
  Country: None (occurrence: None)
  Receive Date: 20090717
  Receipt Date: 20090710
  Transmission Date: 20100115
  Serious: Yes (Other)
  Sender: FDA-Public Use
  Company Number: US-ASTRAZENECA-2009UW19458

PATIENT
  Age: 3 Week
  Sex: Male
  Weight: 2.7 kg

DRUGS (2)
  1. MERREM [Suspect]
     Indication: PYELONEPHRITIS
     Route: 042
  2. IBUPROFEN [Concomitant]

REACTIONS (1)
  - ACCIDENTAL OVERDOSE [None]
